FAERS Safety Report 12347467 (Version 1)
Quarter: 2016Q2

REPORT INFORMATION
  Report Type: Spontaneous
  Country: US (occurrence: US)
  Receive Date: 20160509
  Receipt Date: 20160509
  Transmission Date: 20160815
  Serious: No
  Sender: FDA-Public Use
  Company Number: US-JAZZ-2015-US-012888

PATIENT
  Age: 24 Year
  Sex: Male
  Weight: 96.6 kg

DRUGS (7)
  1. OMEPRAZOLE DR [Concomitant]
     Active Substance: OMEPRAZOLE
     Indication: DYSPEPSIA
     Dosage: UNK
     Dates: start: 20150807
  2. XYREM [Suspect]
     Active Substance: SODIUM OXYBATE
     Indication: CATAPLEXY
  3. PREGNENOLONE [Concomitant]
     Active Substance: PREGNENOLONE
     Indication: ANDROGEN DEFICIENCY
     Dosage: UNK
     Dates: start: 20150807
  4. XYREM [Suspect]
     Active Substance: SODIUM OXYBATE
     Indication: NARCOLEPSY
     Dosage: 2.5 G, BID
     Route: 048
     Dates: start: 20150828
  5. ANASTROZOLE. [Concomitant]
     Active Substance: ANASTROZOLE
     Indication: ANDROGEN DEFICIENCY
     Dosage: UNK
     Dates: start: 20150807
  6. TESTOSTERONE CYPIONATE. [Concomitant]
     Active Substance: TESTOSTERONE CYPIONATE
     Indication: ANDROGEN DEFICIENCY
     Dosage: UNK
     Dates: start: 20150807
  7. DHEA [Concomitant]
     Active Substance: PRASTERONE
     Indication: ANDROGEN DEFICIENCY
     Dosage: UNK
     Dates: start: 20150807

REACTIONS (2)
  - Headache [Recovering/Resolving]
  - Fatigue [Not Recovered/Not Resolved]

NARRATIVE: CASE EVENT DATE: 20150829
